FAERS Safety Report 19877303 (Version 2)
Quarter: 2022Q2

REPORT INFORMATION
  Report Type: Spontaneous
  Country: US (occurrence: US)
  Receive Date: 20210924
  Receipt Date: 20220614
  Transmission Date: 20220721
  Serious: No
  Sender: FDA-Public Use
  Company Number: US-GSKCCFUS-CASE-01164332_AE-68338

PATIENT
  Sex: Female

DRUGS (2)
  1. BENLYSTA [Suspect]
     Active Substance: BELIMUMAB
     Indication: Product used for unknown indication
     Dosage: UNK
     Dates: start: 20210817, end: 202110
  2. PREDNISONE [Suspect]
     Active Substance: PREDNISONE
     Indication: Product used for unknown indication
     Dosage: UNK

REACTIONS (6)
  - Pain in extremity [Recovered/Resolved]
  - Pain [Unknown]
  - Joint swelling [Unknown]
  - Alopecia [Unknown]
  - Depression [Recovered/Resolved]
  - Crying [Unknown]

NARRATIVE: CASE EVENT DATE: 20210101
